FAERS Safety Report 5704314-4 (Version None)
Quarter: 2008Q2

REPORT INFORMATION
  Report Type: 
  Country: None (occurrence: None)
  Receive Date: 20080414
  Receipt Date: 20080401
  Transmission Date: 20081010
  Serious: Yes (Life-Threatening)
  Sender: FDA-Public Use
  Company Number: US-BAYER-200816111GPV

PATIENT
  Age: 45 Year
  Sex: Female

DRUGS (5)
  1. ASPIRIN [Suspect]
     Route: 065
  2. ACETAMINOPHEN [Suspect]
     Route: 065
  3. ETOMIDATE [Concomitant]
     Indication: ENDOTRACHEAL INTUBATION
     Route: 065
  4. SUCCINLYCHOLINE [Concomitant]
     Indication: PARALYSIS
     Route: 065
  5. BENZODIAZEPINES [Concomitant]
     Indication: SEDATIVE THERAPY
     Route: 065

REACTIONS (9)
  - ACUTE MYOCARDIAL INFARCTION [None]
  - ATRIAL FIBRILLATION [None]
  - GRAND MAL CONVULSION [None]
  - HYPOTENSION [None]
  - INTENTIONAL OVERDOSE [None]
  - SINUS TACHYCARDIA [None]
  - THERAPEUTIC AGENT TOXICITY [None]
  - TORSADE DE POINTES [None]
  - VENTRICULAR TACHYCARDIA [None]
